FAERS Safety Report 4597279-2 (Version None)
Quarter: 2005Q1

REPORT INFORMATION
  Report Type: 
  Country: None (occurrence: None)
  Receive Date: 20050225
  Receipt Date: 20050225
  Transmission Date: 20050727
  Serious: Yes (Other)
  Sender: FDA-Public Use
  Company Number: None

PATIENT
  Sex: Female
  Weight: 56.6996 kg

DRUGS (2)
  1. ZOLOFT [Suspect]
     Indication: DEPRESSION
     Dates: start: 20010701, end: 20050218
  2. ZOLOFT [Suspect]
     Indication: PREMENSTRUAL SYNDROME
     Dates: start: 20010701, end: 20050218

REACTIONS (8)
  - AGITATION [None]
  - DEPRESSION [None]
  - DIZZINESS [None]
  - FEELING ABNORMAL [None]
  - PARAESTHESIA [None]
  - PHARYNGITIS STREPTOCOCCAL [None]
  - TREATMENT NONCOMPLIANCE [None]
  - TUNNEL VISION [None]
